FAERS Safety Report 8956039 (Version 1)
Quarter: 2012Q4

REPORT INFORMATION
  Report Type: 
  Country: DE (occurrence: DE)
  Receive Date: 20121210
  Receipt Date: 20121210
  Transmission Date: 20130627
  Serious: Yes (Life-Threatening, Hospitalization, Disabling)
  Sender: FDA-Public Use
  Company Number: DE-UCBSA-072606

PATIENT
  Age: 56 Year
  Sex: Male
  Weight: 78 kg

DRUGS (12)
  1. LEVETIRACETAM [Suspect]
  2. TEMOZOLOMIDE [Suspect]
     Indication: GLIOBLASTOMA
     Dosage: UNKNOWN DOSE
     Route: 048
     Dates: start: 20100913
  3. LORAZEPAM [Concomitant]
     Dates: start: 20100910
  4. PANTOPRAZOLE [Concomitant]
     Dosage: DOSE: 0-0-1
     Dates: start: 20100820
  5. FORTECORTIN [Concomitant]
     Dates: start: 20110411
  6. FORTECORTIN [Concomitant]
     Dates: start: 20101213
  7. FORTECORTIN [Concomitant]
     Dosage: DAILY DOSE: 1-1-1
     Dates: start: 20100820
  8. FRAXIPARIN [Concomitant]
     Dates: start: 20100820
  9. SOBELIN [Concomitant]
     Dosage: DAILY DOSE: 4/300 MG
     Dates: start: 20100919
  10. HYPERICUM PERFORATUM [Concomitant]
     Dosage: DAILY DOSE: 0-0-1
     Dates: start: 20100920
  11. BAYOTENSIN [Concomitant]
     Dates: start: 20110302, end: 20110302
  12. ONDANSETRON [Concomitant]
     Dates: start: 20110316

REACTIONS (1)
  - Neurological decompensation [Not Recovered/Not Resolved]
